FAERS Safety Report 24016058 (Version 2)
Quarter: 2024Q3

REPORT INFORMATION
  Report Type: Spontaneous
  Country: DE (occurrence: DE)
  Receive Date: 20240626
  Receipt Date: 20240702
  Transmission Date: 20241017
  Serious: Yes (Hospitalization, Other)
  Sender: BAUSCH AND LOMB
  Company Number: None

PATIENT
  Age: 17 Year
  Sex: Male

DRUGS (8)
  1. DICLOFENAC [Suspect]
     Active Substance: DICLOFENAC
     Indication: Femur fracture
     Route: 065
  2. DICLOFENAC [Suspect]
     Active Substance: DICLOFENAC
     Indication: Procedural pain
  3. METAMIZOLE [Suspect]
     Active Substance: METAMIZOLE
     Indication: Procedural pain
     Route: 065
  4. METAMIZOLE [Suspect]
     Active Substance: METAMIZOLE
     Indication: Femur fracture
  5. TILIDINE [Suspect]
     Active Substance: TILIDINE
     Indication: Procedural pain
     Route: 065
  6. TILIDINE [Suspect]
     Active Substance: TILIDINE
     Indication: Femur fracture
  7. PANTOPRAZOLE [Concomitant]
     Active Substance: PANTOPRAZOLE
     Indication: Prophylaxis
     Route: 065
  8. TILIDINE [Concomitant]
     Active Substance: TILIDINE
     Indication: Procedural pain
     Route: 065

REACTIONS (9)
  - Odynophagia [Recovered/Resolved]
  - Chills [Recovered/Resolved]
  - Odynophagia [Unknown]
  - Dysphagia [Unknown]
  - Chills [Unknown]
  - Neutropenia [Recovered/Resolved]
  - Agranulocytosis [Recovered/Resolved]
  - Agranulocytosis [Recovered/Resolved]
  - Pyrexia [Recovered/Resolved]
